FAERS Safety Report 5201945-5 (Version None)
Quarter: 2007Q1

REPORT INFORMATION
  Report Type: 
  Country: None (occurrence: None)
  Receive Date: 20070104
  Receipt Date: 20061222
  Transmission Date: 20070707
  Serious: Yes (Congenital Anomaly)
  Sender: FDA-Public Use
  Company Number: 151245ISR

PATIENT

DRUGS (3)
  1. DIAZEPAM [Suspect]
     Dosage: 2 MG, AS REQUIRED
     Route: 048
  2. VENLAFAXINE HCL [Suspect]
     Indication: ANXIETY
     Dosage: 37.5 MG
     Route: 048
     Dates: end: 20060801
  3. VENLAFAXINE HCL [Suspect]
     Indication: MOOD ALTERED
     Dosage: 37.5 MG
     Route: 048
     Dates: end: 20060801

REACTIONS (2)
  - LIMB HYPOPLASIA CONGENITAL [None]
  - LIMB REDUCTION DEFECT [None]
